FAERS Safety Report 7701441-7 (Version None)
Quarter: 2011Q3

REPORT INFORMATION
  Report Type: 
  Country: None (occurrence: None)
  Receive Date: 20110819
  Receipt Date: 20110819
  Transmission Date: 20111222
  Serious: Yes (Hospitalization)
  Sender: FDA-Public Use
  Company Number: None

PATIENT
  Age: 64 Year
  Sex: Male
  Weight: 105 kg

DRUGS (2)
  1. WARFARIN SODIUM [Suspect]
     Indication: CEREBROVASCULAR ACCIDENT PROPHYLAXIS
     Dosage: 5  MG EVERY DAY PO
     Route: 048
     Dates: start: 20001214, end: 20110126
  2. WARFARIN SODIUM [Suspect]
     Indication: PULMONARY EMBOLISM
     Dosage: 5  MG EVERY DAY PO
     Route: 048
     Dates: start: 20001214, end: 20110126

REACTIONS (4)
  - HEADACHE [None]
  - INTERNATIONAL NORMALISED RATIO ABNORMAL [None]
  - SUBDURAL HAEMATOMA [None]
  - INTRACRANIAL PRESSURE INCREASED [None]
